FAERS Safety Report 16872993 (Version 1)
Quarter: 2019Q4

REPORT INFORMATION
  Report Type: Spontaneous
  Country: CA (occurrence: CA)
  Receive Date: 20191001
  Receipt Date: 20191001
  Transmission Date: 20200122
  Serious: Yes (Other)
  Sender: FDA-Public Use
  Company Number: CA-PFIZER INC-2019419408

PATIENT
  Age: 66 Year
  Sex: Female

DRUGS (3)
  1. METHOTREXATE SODIUM. [Suspect]
     Active Substance: METHOTREXATE SODIUM
     Indication: RHEUMATOID ARTHRITIS
     Dosage: UNK
     Route: 065
  2. SULFASALAZINE. [Concomitant]
     Active Substance: SULFASALAZINE
     Indication: RHEUMATOID ARTHRITIS
     Dosage: UNK
  3. HUMIRA [Suspect]
     Active Substance: ADALIMUMAB
     Dosage: 40.0 MG, 1 EVERY 2 WEEKS
     Route: 058

REACTIONS (10)
  - Arthralgia [Unknown]
  - Rheumatoid arthritis [Unknown]
  - Cardiomegaly [Unknown]
  - Drug specific antibody present [Unknown]
  - Joint swelling [Unknown]
  - Device deposit issue [Unknown]
  - Cough [Unknown]
  - Inflammation [Unknown]
  - Drug ineffective [Unknown]
  - Musculoskeletal stiffness [Unknown]
